FAERS Safety Report 10843226 (Version 1)
Quarter: 2015Q1

REPORT INFORMATION
  Report Type: Spontaneous
  Country: US (occurrence: US)
  Receive Date: 20150220
  Receipt Date: 20150220
  Transmission Date: 20150721
  Serious: No
  Sender: FDA-Public Use
  Company Number: US-ABBVIE-14P-163-1271883-00

PATIENT
  Age: 19 Year
  Sex: Female

DRUGS (2)
  1. HUMIRA [Suspect]
     Active Substance: ADALIMUMAB
     Indication: COLITIS ULCERATIVE
     Route: 058
     Dates: start: 20140613, end: 20140811
  2. UCERIS [Suspect]
     Active Substance: BUDESONIDE
     Indication: COLITIS ULCERATIVE

REACTIONS (3)
  - Weight increased [Unknown]
  - Hypoaesthesia [Unknown]
  - Rash [Unknown]

NARRATIVE: CASE EVENT DATE: 201406
